FAERS Safety Report 25981109 (Version 1)
Quarter: 2025Q4

REPORT INFORMATION
  Report Type: Spontaneous
  Country: GB (occurrence: GB)
  Receive Date: 20251030
  Receipt Date: 20251030
  Transmission Date: 20260118
  Serious: Yes (Other)
  Sender: NOVO NORDISK
  Company Number: GB-MHRA-EMIS-11507-e6f3b9f9-a823-4b29-9f16-ae36464ec642

PATIENT
  Age: 41 Year
  Sex: Male
  Weight: 93 kg

DRUGS (1)
  1. RYBELSUS [Suspect]
     Active Substance: SEMAGLUTIDE
     Indication: Product used for unknown indication
     Dosage: 14 MG, QD
     Dates: start: 20240601, end: 20251013

REACTIONS (1)
  - Allodynia [Not Recovered/Not Resolved]

NARRATIVE: CASE EVENT DATE: 20240701
